FAERS Safety Report 4501961-2 (Version None)
Quarter: 2004Q4

REPORT INFORMATION
  Report Type: 
  Country: None (occurrence: None)
  Receive Date: 20041115
  Receipt Date: 20041115
  Transmission Date: 20050328
  Serious: Yes (Hospitalization)
  Sender: FDA-Public Use
  Company Number: None

PATIENT
  Age: 70 Year
  Sex: Female
  Weight: 62.6 kg

DRUGS (11)
  1. LITHIUM [Suspect]
  2. DILTIAZEM [Suspect]
  3. ATORVASTATIN CALCIUM [Concomitant]
  4. HYOSCINE 0.25% ORHTH SOLN [Concomitant]
  5. LUBRICATING OPHTH OINT [Concomitant]
  6. POLYVINYL ALCOHOL 1% OPHTH SOL [Concomitant]
  7. ATENOLOL [Concomitant]
  8. PREDNISONE 1% OPHTH SUSP [Concomitant]
  9. MULTIVITAMIN WITH MINERALS [Concomitant]
  10. CLOTRIMAZOLE 1% CREAM [Concomitant]
  11. HYDROCORTISONE CREAM [Concomitant]

REACTIONS (7)
  - COGNITIVE DISORDER [None]
  - DECREASED APPETITE [None]
  - DIZZINESS [None]
  - NAUSEA [None]
  - THERAPEUTIC AGENT TOXICITY [None]
  - TREMOR [None]
  - VOMITING [None]
